FAERS Safety Report 20869868 (Version 1)
Quarter: 2022Q2

REPORT INFORMATION
  Report Type: Spontaneous
  Country: US (occurrence: US)
  Receive Date: 20220525
  Receipt Date: 20220525
  Transmission Date: 20220721
  Serious: No
  Sender: FDA-Public Use
  Company Number: US-SUN PHARMACEUTICAL INDUSTRIES LTD-2021R1-310180

PATIENT
  Age: 77 Year
  Sex: Male

DRUGS (1)
  1. BROMSITE [Suspect]
     Active Substance: BROMFENAC SODIUM
     Indication: Eye operation
     Dosage: UNK, BID
     Route: 047
     Dates: start: 20210816

REACTIONS (2)
  - Ocular discomfort [Unknown]
  - Eyelid margin crusting [Unknown]

NARRATIVE: CASE EVENT DATE: 20210816
